FAERS Safety Report 17086964 (Version 1)
Quarter: 2019Q4

REPORT INFORMATION
  Report Type: Spontaneous
  Country: US (occurrence: US)
  Receive Date: 20191030
  Receipt Date: 20191030
  Transmission Date: 20200122
  Serious: Yes (Life-Threatening, Hospitalization)
  Sender: FDA-Public Use
  Company Number: None

PATIENT

DRUGS (1)
  1. COZAAR [Suspect]
     Active Substance: LOSARTAN POTASSIUM
     Indication: HYPERTENSION
     Route: 048
     Dates: start: 20181009, end: 20191009

REACTIONS (8)
  - Hypotension [None]
  - Hallucination [None]
  - Loss of consciousness [None]
  - Hyperhidrosis [None]
  - Insomnia [None]
  - Anxiety [None]
  - Nightmare [None]
  - Peripheral swelling [None]
